FAERS Safety Report 22160462 (Version 1)
Quarter: 2023Q1

REPORT INFORMATION
  Report Type: Report from Study
  Country: CN (occurrence: CN)
  Receive Date: 20230331
  Receipt Date: 20230331
  Transmission Date: 20230418
  Serious: Yes (Hospitalization, Other)
  Sender: FDA-Public Use
  Company Number: CN-TAKEDA-2023TUS031491

PATIENT
  Age: 5 Year
  Sex: Male
  Weight: 17 kg

DRUGS (6)
  1. ADVATE [Suspect]
     Active Substance: ANTIHEMOPHILIC FACTOR, HUMAN RECOMBINANT
     Indication: Factor VIII deficiency
     Dosage: 500 INTERNATIONAL UNIT, 3/WEEK
     Route: 040
     Dates: start: 20211202
  2. ADVATE [Suspect]
     Active Substance: ANTIHEMOPHILIC FACTOR, HUMAN RECOMBINANT
     Indication: Factor VIII deficiency
     Dosage: 500 INTERNATIONAL UNIT, 3/WEEK
     Route: 040
     Dates: start: 20211202
  3. ADVATE [Suspect]
     Active Substance: ANTIHEMOPHILIC FACTOR, HUMAN RECOMBINANT
     Indication: Factor VIII deficiency
     Dosage: 500 INTERNATIONAL UNIT, 3/WEEK
     Route: 040
     Dates: start: 20211202
  4. ADVATE [Suspect]
     Active Substance: ANTIHEMOPHILIC FACTOR, HUMAN RECOMBINANT
     Dosage: 1250 INTERNATIONAL UNIT, 3/WEEK
     Route: 040
     Dates: start: 20230323
  5. ADVATE [Suspect]
     Active Substance: ANTIHEMOPHILIC FACTOR, HUMAN RECOMBINANT
     Dosage: 1250 INTERNATIONAL UNIT, 3/WEEK
     Route: 040
     Dates: start: 20230323
  6. ADVATE [Suspect]
     Active Substance: ANTIHEMOPHILIC FACTOR, HUMAN RECOMBINANT
     Dosage: 1250 INTERNATIONAL UNIT, 3/WEEK
     Route: 040
     Dates: start: 20230323

REACTIONS (1)
  - Cryptorchism [Recovered/Resolved]

NARRATIVE: CASE EVENT DATE: 20230323
